FAERS Safety Report 8465134-3 (Version None)
Quarter: 2012Q2

REPORT INFORMATION
  Report Type: 
  Country: None (occurrence: None)
  Receive Date: 20120618
  Receipt Date: 20120531
  Transmission Date: 20120825
  Serious: Yes (Other)
  Sender: FDA-Public Use
  Company Number: ADE 12-063

PATIENT
  Age: 45 Year
  Sex: Male
  Weight: 84.8226 kg

DRUGS (13)
  1. ATRACURIUM BESYLATE [Concomitant]
  2. O2 [Concomitant]
  3. MEFOXIN [Concomitant]
  4. NEOSTIGMINE [Concomitant]
  5. ANECTIN [Concomitant]
  6. VERSED [Concomitant]
  7. DIPRIVAN [Concomitant]
  8. ATRACURIUM BESYLATE [Suspect]
     Indication: APPENDICITIS
     Dosage: 20 MG, 3 DOSES, IV
     Route: 042
     Dates: start: 20120527
  9. VERSED [Concomitant]
  10. XYLOCAINE [Concomitant]
  11. ROBINUL [Concomitant]
  12. FENTANYL CITRATE [Concomitant]
  13. SEVOFLURANE [Concomitant]

REACTIONS (1)
  - DRUG EFFECT DECREASED [None]
